FAERS Safety Report 5140094-1 (Version None)
Quarter: 2006Q4

REPORT INFORMATION
  Report Type: 
  Country: None (occurrence: None)
  Receive Date: 20061026
  Receipt Date: 20061026
  Transmission Date: 20070319
  Serious: Yes (Other)
  Sender: FDA-Public Use
  Company Number: None

PATIENT
  Sex: Female
  Weight: 72.5755 kg

DRUGS (1)
  1. NEOMYCIN/POLYMIXIN/HYDROCORTISONE EYE SUSP., FALCON [Suspect]
     Indication: CONJUNCTIVITIS
     Dosage: 1-2 DROPS 4 TIMES DAILY INTO EYE
     Route: 047
     Dates: start: 20060927, end: 20060928

REACTIONS (4)
  - CONDITION AGGRAVATED [None]
  - DRUG THERAPY CHANGED [None]
  - ERYTHEMA [None]
  - PRURITUS [None]
